FAERS Safety Report 23096559 (Version 2)
Quarter: 2023Q4

REPORT INFORMATION
  Report Type: Report from Study
  Country: KR (occurrence: KR)
  Receive Date: 20231023
  Receipt Date: 20231109
  Transmission Date: 20240110
  Serious: Yes (Hospitalization)
  Sender: FDA-Public Use
  Company Number: KR-MYLANLABS-2023M1111167

PATIENT
  Age: 57 Year
  Sex: Female
  Weight: 58 kg

DRUGS (13)
  1. TRASTUZUMAB [Suspect]
     Active Substance: TRASTUZUMAB
     Indication: Breast neoplasm
     Dosage: 600 MILLIGRAM, Q3W
     Route: 058
     Dates: start: 20190621
  2. PACLITAXEL [Suspect]
     Active Substance: PACLITAXEL
     Indication: Breast neoplasm
     Dosage: UNK
     Route: 065
  3. CARBOPLATIN [Suspect]
     Active Substance: CARBOPLATIN
     Indication: Breast neoplasm
     Dosage: UNK
     Route: 065
  4. LIPITOR [Concomitant]
     Active Substance: ATORVASTATIN CALCIUM
     Indication: Type IIa hyperlipidaemia
     Dosage: 10 MILLIGRAM
     Route: 048
     Dates: start: 20190621
  5. BACILLUS SUBTILIS;ENTEROCOCCUS FAECIUM [Concomitant]
     Dosage: UNK
     Route: 048
     Dates: start: 20190508
  6. ESOMEPRAZOLE MAGNESIUM [Concomitant]
     Active Substance: ESOMEPRAZOLE\ESOMEPRAZOLE MAGNESIUM\ESOMEPRAZOLE MAGNESIUM DIHYDRATE
     Dosage: 40 MILLIGRAM
     Route: 048
     Dates: start: 20190607
  7. ACETAMINOPHEN\TRAMADOL HYDROCHLORIDE [Concomitant]
     Active Substance: ACETAMINOPHEN\TRAMADOL HYDROCHLORIDE
     Dosage: UNK
     Route: 048
     Dates: start: 20190308
  8. PREGABALIN [Concomitant]
     Active Substance: PREGABALIN
     Dosage: 75 MILLIGRAM
     Route: 048
  9. ALMAGATE [Concomitant]
     Active Substance: ALMAGATE
     Dosage: 6 MILLIGRAM (02-AUG-2019)
     Route: 048
  10. MOMETASONE FUROATE [Concomitant]
     Active Substance: MOMETASONE FUROATE
     Indication: Rash erythematous
     Dosage: UNK, 22-AUG-2019
     Route: 065
  11. GLUTATHIONE REDUCED [Concomitant]
     Indication: Mononeuropathy
     Dosage: 1800 MILLIGRAM, 22-AUG-2019
     Route: 042
     Dates: end: 20190823
  12. TRIAMCINOLONE ACETONIDE [Concomitant]
     Active Substance: TRIAMCINOLONE ACETONIDE
     Dosage: 40 MILLIGRAM, 23-AUG-2019
     Route: 030
     Dates: end: 20190823
  13. DIFLUCORTOLONE;ISOCONAZOLE [Concomitant]
     Indication: Rash erythematous
     Dosage: UNK, 22-AUG-2019
     Route: 065

REACTIONS (6)
  - Neuropathy peripheral [Recovered/Resolved]
  - Calcium deficiency [Recovered/Resolved]
  - Palmar erythema [Recovering/Resolving]
  - Plantar erythema [Recovering/Resolving]
  - Musculoskeletal pain [Recovered/Resolved]
  - Rash erythematous [Recovering/Resolving]

NARRATIVE: CASE EVENT DATE: 20190621
